FAERS Safety Report 6105497-7 (Version None)
Quarter: 2009Q1

REPORT INFORMATION
  Report Type: 
  Country: None (occurrence: None)
  Receive Date: 20090306
  Receipt Date: 20090227
  Transmission Date: 20090719
  Serious: Yes (Hospitalization)
  Sender: FDA-Public Use
  Company Number: A0771648A

PATIENT
  Age: 74 Year
  Sex: Male
  Weight: 74.5 kg

DRUGS (8)
  1. AVANDIA [Suspect]
     Indication: DIABETES MELLITUS
     Dosage: 4MG PER DAY
     Route: 048
     Dates: start: 20001101, end: 20070101
  2. LIPITOR [Concomitant]
  3. ZOCOR [Concomitant]
  4. LESCOL [Concomitant]
  5. EFFEXOR [Concomitant]
  6. CARTIA XT [Concomitant]
  7. FOLIC ACID [Concomitant]
  8. PRILOSEC [Concomitant]

REACTIONS (1)
  - MYOCARDIAL INFARCTION [None]
